FAERS Safety Report 11976996 (Version 1)
Quarter: 2016Q1

REPORT INFORMATION
  Report Type: Spontaneous
  Country: TH (occurrence: TH)
  Receive Date: 20160129
  Receipt Date: 20160129
  Transmission Date: 20160526
  Serious: Yes (Other)
  Sender: FDA-Public Use
  Company Number: TH-ABBVIE-16P-155-1547651-00

PATIENT
  Age: 6 Year
  Sex: Female

DRUGS (1)
  1. DEPAKINE [Suspect]
     Active Substance: VALPROATE SODIUM
     Indication: EPILEPSY
     Route: 048

REACTIONS (3)
  - Thrombocytopenia [Recovering/Resolving]
  - Hepatitis [Recovering/Resolving]
  - Alopecia [Recovering/Resolving]
